FAERS Safety Report 9764575 (Version 2)
Quarter: 2014Q1

REPORT INFORMATION
  Report Type: Spontaneous
  Country: IT (occurrence: IT)
  Receive Date: 20131217
  Receipt Date: 20140131
  Transmission Date: 20141002
  Serious: Yes (Hospitalization)
  Sender: FDA-Public Use
  Company Number: IT-ROCHE-1320782

PATIENT
  Age: 63 Year
  Sex: Male
  Weight: 61 kg

DRUGS (1)
  1. AVASTIN [Suspect]
     Indication: COLON NEOPLASM
     Route: 042
     Dates: start: 20130401, end: 20131125

REACTIONS (1)
  - Haemorrhagic anaemia [Recovering/Resolving]
